FAERS Safety Report 21007441 (Version 1)
Quarter: 2022Q2

REPORT INFORMATION
  Report Type: Report from Study
  Country: DE (occurrence: DE)
  Receive Date: 20220626
  Receipt Date: 20220626
  Transmission Date: 20220721
  Serious: Yes (Hospitalization, Other)
  Sender: FDA-Public Use
  Company Number: DE-TEVA-2022-DE-2049567

PATIENT
  Age: 5 Decade
  Sex: Female

DRUGS (4)
  1. CELECOXIB [Suspect]
     Active Substance: CELECOXIB
     Indication: Ankylosing spondylitis
     Route: 065
     Dates: start: 20170918, end: 20181105
  2. CELECOXIB [Suspect]
     Active Substance: CELECOXIB
     Indication: Axial spondyloarthritis
     Route: 065
     Dates: start: 20191107, end: 20201215
  3. CELECOXIB [Suspect]
     Active Substance: CELECOXIB
     Route: 065
     Dates: start: 20190101, end: 20190501
  4. ACEMETACIN [Concomitant]
     Active Substance: ACEMETACIN
     Indication: Product used for unknown indication
     Route: 065
     Dates: start: 20181105, end: 20181108

REACTIONS (18)
  - Intervertebral disc protrusion [Recovered/Resolved]
  - Postoperative adhesion [Recovered/Resolved]
  - Residual urine volume increased [Recovered/Resolved]
  - Back pain [Recovered/Resolved]
  - Polyarthritis [Unknown]
  - Axial spondyloarthritis [Recovered/Resolved]
  - Rotator cuff syndrome [Recovered/Resolved]
  - Hypertonic bladder [Unknown]
  - Osteochondrosis [Recovered/Resolved]
  - Multiple sclerosis [Unknown]
  - Functional gastrointestinal disorder [Unknown]
  - Upper respiratory tract infection [Unknown]
  - Urinary tract infection [Unknown]
  - Ovarian cyst [Unknown]
  - Laryngitis [Unknown]
  - Rash [Unknown]
  - Gastritis [Unknown]
  - Off label use [Unknown]

NARRATIVE: CASE EVENT DATE: 20190304
